FAERS Safety Report 6822344-6 (Version None)
Quarter: 2010Q3

REPORT INFORMATION
  Report Type: 
  Country: None (occurrence: None)
  Receive Date: 20100708
  Receipt Date: 20100623
  Transmission Date: 20110219
  Serious: Yes (Hospitalization, Other)
  Sender: FDA-Public Use
  Company Number: PHHY2010US39585

PATIENT
  Sex: Male
  Weight: 90.6 kg

DRUGS (5)
  1. GLEEVEC [Suspect]
     Indication: CHRONIC MYELOID LEUKAEMIA
     Dosage: 800 MG DAILY
     Route: 048
     Dates: start: 20010101, end: 20100615
  2. HYZAAR [Concomitant]
  3. NORVASC [Concomitant]
  4. PREVACID [Concomitant]
     Dosage: 30 MG DAILY
  5. CIPROFLOXACIN [Concomitant]
     Dosage: 500 MG DAILY
     Route: 048

REACTIONS (19)
  - ABDOMINAL DISTENSION [None]
  - ABDOMINAL PAIN [None]
  - ASCITES [None]
  - CLOSTRIDIUM DIFFICILE COLITIS [None]
  - CREATININE RENAL CLEARANCE DECREASED [None]
  - DIARRHOEA [None]
  - DIVERTICULITIS [None]
  - DIVERTICULUM [None]
  - FLUID RETENTION [None]
  - HYPOVOLAEMIA [None]
  - NAUSEA [None]
  - OEDEMA PERIPHERAL [None]
  - PARACENTESIS [None]
  - PLEURAL EFFUSION [None]
  - RENAL FAILURE ACUTE [None]
  - RENAL TUBULAR NECROSIS [None]
  - URINE OUTPUT DECREASED [None]
  - VOMITING [None]
  - WEIGHT DECREASED [None]
